FAERS Safety Report 8817562 (Version 1)
Quarter: 2012Q4

REPORT INFORMATION
  Report Type: 
  Country: CA (occurrence: CA)
  Receive Date: 20121004
  Receipt Date: 20121004
  Transmission Date: 20130627
  Serious: Yes (Life-Threatening, Hospitalization, Other)
  Sender: FDA-Public Use
  Company Number: CA-B.I. PHARMACEUTICALS,INC./RIDGEFIELD-2012-EU-04939GD

PATIENT
  Age: 51 Year
  Sex: Female

DRUGS (1)
  1. DABIGATRAN ETEXILATE [Suspect]
     Indication: ANTICOAGULANT THERAPY
     Dosage: 300 mg

REACTIONS (5)
  - Cardiac arrest [Recovered/Resolved]
  - Cardiac valve replacement complication [Recovered/Resolved]
  - Left ventricular dysfunction [Recovered/Resolved]
  - Cardiogenic shock [Recovered/Resolved]
  - Coagulopathy [Unknown]
